FAERS Safety Report 11242377 (Version 2)
Quarter: 2015Q3

REPORT INFORMATION
  Report Type: Report from Study
  Country: US (occurrence: US)
  Receive Date: 20150707
  Receipt Date: 20150728
  Transmission Date: 20151125
  Serious: Yes (Death, Hospitalization, Other)
  Sender: FDA-Public Use
  Company Number: US-AMGEN-USASL2015065704

PATIENT
  Age: 56 Year
  Sex: Male
  Weight: 37.19 kg

DRUGS (1)
  1. PROCRIT [Suspect]
     Active Substance: ERYTHROPOIETIN
     Indication: PRODUCT USED FOR UNKNOWN INDICATION
     Dosage: 40,000 1ML, UNK
     Route: 065

REACTIONS (6)
  - Bronchopulmonary aspergillosis [Fatal]
  - Malnutrition [Fatal]
  - Mycobacterium avium complex infection [Fatal]
  - Cachexia [Fatal]
  - Abdominal pain [Unknown]
  - Respiratory failure [Unknown]
